FAERS Safety Report 5132808-1 (Version None)
Quarter: 2006Q4

REPORT INFORMATION
  Report Type: 
  Country: None (occurrence: None)
  Receive Date: 20061017
  Receipt Date: 20061003
  Transmission Date: 20070319
  Serious: Yes (Hospitalization, Other)
  Sender: FDA-Public Use
  Company Number: FRWYE646310AUG06

PATIENT
  Age: 12 Year
  Sex: Male

DRUGS (2)
  1. ADVIL [Suspect]
     Indication: PYREXIA
     Dosage: 525 MG 1X PER 1 DAY ORAL
     Route: 048
     Dates: start: 20060525, end: 20060525
  2. AUGMENTIN '125' [Concomitant]

REACTIONS (3)
  - CONCOMITANT DISEASE AGGRAVATED [None]
  - PYELONEPHRITIS ACUTE [None]
  - RENAL FAILURE [None]
